FAERS Safety Report 17982978 (Version 4)
Quarter: 2020Q4

REPORT INFORMATION
  Report Type: Spontaneous
  Country: US (occurrence: US)
  Receive Date: 20200706
  Receipt Date: 20201110
  Transmission Date: 20210113
  Serious: No
  Sender: FDA-Public Use
  Company Number: US-PFIZER INC-2020254880

PATIENT
  Age: 80 Year
  Sex: Female
  Weight: 55.56 kg

DRUGS (14)
  1. IBRANCE [Suspect]
     Active Substance: PALBOCICLIB
     Indication: BREAST CANCER
     Dosage: 125 MG, CYCLIC (DAILY; 21 OF 28 DAYS)
     Route: 048
     Dates: start: 20200527
  2. OMEPRAZOLE. [Concomitant]
     Active Substance: OMEPRAZOLE
     Dosage: UNK (10 MG)
  3. FASLODEX [Concomitant]
     Active Substance: FULVESTRANT
     Dosage: UNK (250 MG/5ML, SYRINGE)
  4. HYDROCHLOROTHIAZIDE. [Concomitant]
     Active Substance: HYDROCHLOROTHIAZIDE
     Dosage: UNK (12.5 MG )
  5. METOPROLOL SUCCINATE. [Concomitant]
     Active Substance: METOPROLOL SUCCINATE
     Dosage: UNK
  6. TYLENOL [Concomitant]
     Active Substance: ACETAMINOPHEN
     Dosage: UNK (325 MG)
  7. CENTRUM MULTIGUMMIES [Concomitant]
     Active Substance: MINERALS\VITAMINS
     Dosage: UNK (18MG-0.4MG)
  8. XARELTO [Concomitant]
     Active Substance: RIVAROXABAN
     Dosage: UNK (10 MG)
  9. GABAPENTIN. [Concomitant]
     Active Substance: GABAPENTIN
     Dosage: UNK (100 MG)
  10. TRADJENTA [Concomitant]
     Active Substance: LINAGLIPTIN
     Indication: BLOOD GLUCOSE ABNORMAL
     Dosage: UNK (5 MG)
  11. OSTEO BI-FLEX [Concomitant]
     Active Substance: CHONDROITIN SULFATE A\GLUCOSAMINE
     Dosage: UNK (1500 MG-400)
  12. IBRANCE [Suspect]
     Active Substance: PALBOCICLIB
     Indication: BONE CANCER
     Dosage: 125 MG, CYCLIC [DAILY 21 DAYS]
     Route: 048
     Dates: start: 20200527
  13. GLIPIZIDE. [Concomitant]
     Active Substance: GLIPIZIDE
     Dosage: UNK (10 MG)
  14. ZOMETA [Concomitant]
     Active Substance: ZOLEDRONIC ACID
     Indication: BONE DISORDER
     Dosage: UNK (4 MG/100ML PGGYBK BTL)

REACTIONS (14)
  - Eye disorder [Unknown]
  - Epistaxis [Unknown]
  - Chest pain [Unknown]
  - Diarrhoea [Recovered/Resolved]
  - Lip disorder [Unknown]
  - Oral disorder [Unknown]
  - Tinnitus [Unknown]
  - Fatigue [Unknown]
  - Neoplasm progression [Unknown]
  - Dry mouth [Unknown]
  - Oral discomfort [Unknown]
  - Scab [Unknown]
  - Abdominal pain upper [Unknown]
  - Tremor [Unknown]
